FAERS Safety Report 6953539 (Version 4)
Quarter: 2014Q3

REPORT INFORMATION
  Report Type: Spontaneous
  Country: US (occurrence: None)
  Receive Date: 20090319
  Receipt Date: 20140922
  Transmission Date: 20150326
  Serious: Yes (Other)
  Sender: FDA-Public Use
  Company Number: 2009S1004122

PATIENT
  Age: 55 Year
  Sex: Male
  Weight: 123 kg

DRUGS (5)
  1. NORVASC [Concomitant]
     Active Substance: AMLODIPINE BESYLATE
  2. ALEVE (NAPROXEN SODIUM) [Concomitant]
  3. PHOSPHO-SODA [Suspect]
     Active Substance: SODIUM PHOSPHATE, DIBASIC\SODIUM PHOSPHATE, MONOBASIC
     Indication: COLONOSCOPY
     Dosage: PO
     Route: 048
     Dates: start: 20060723, end: 20060723
  4. SIMETHICONE [Suspect]
     Active Substance: DIMETHICONE\SILICON DIOXIDE\SIMETHICONE
     Route: 048
     Dates: start: 20060723, end: 20060723
  5. PAXIL [Concomitant]
     Active Substance: PAROXETINE HYDROCHLORIDE

REACTIONS (7)
  - Tubulointerstitial nephritis [None]
  - Blood parathyroid hormone increased [None]
  - Renal failure acute [None]
  - Renal cyst [None]
  - Renal hypertrophy [None]
  - Hypertension [None]
  - Renal atrophy [None]

NARRATIVE: CASE EVENT DATE: 20070111
